FAERS Safety Report 10460391 (Version 1)
Quarter: 2014Q3

REPORT INFORMATION
  Report Type: Spontaneous
  Country: US (occurrence: US)
  Receive Date: 20140917
  Receipt Date: 20140917
  Transmission Date: 20150326
  Serious: Yes (Other)
  Sender: FDA-Public Use
  Company Number: US-ALLERGAN-1420036US

PATIENT
  Age: 62 Year
  Sex: Female

DRUGS (10)
  1. METHENAMINE [Concomitant]
     Active Substance: METHENAMINE
     Indication: PROPHYLAXIS URINARY TRACT INFECTION
     Dosage: 1 G, QD
  2. BOTOX [Suspect]
     Active Substance: ONABOTULINUMTOXINA
     Dosage: UNK, SINGLE
     Dates: start: 20140116, end: 20140116
  3. LEVETIRACETAM. [Concomitant]
     Active Substance: LEVETIRACETAM
     Indication: CONVULSION
     Dosage: 10 ML, BID
  4. BOTOX [Suspect]
     Active Substance: ONABOTULINUMTOXINA
     Indication: MUSCLE SPASTICITY
     Dosage: UNK, SINGLE
     Dates: start: 20140410, end: 20140410
  5. ZONISAMIDE. [Concomitant]
     Active Substance: ZONISAMIDE
     Indication: CONVULSION
     Dosage: 200 MG, QHS
  6. CITALOPRAM [Concomitant]
     Active Substance: CITALOPRAM HYDROBROMIDE
     Indication: DEPRESSION
     Dosage: 20 MG, QD
  7. VITAMIN D3 [Concomitant]
     Active Substance: CHOLECALCIFEROL
     Dosage: 2000 UNITS, QD
  8. FLUTICASONE [Concomitant]
     Active Substance: FLUTICASONE\FLUTICASONE PROPIONATE
     Indication: SINUS CONGESTION
     Dosage: 50 MG, QD
     Route: 045
  9. MODAFINIL. [Concomitant]
     Active Substance: MODAFINIL
     Indication: POOR QUALITY SLEEP
     Dosage: 100 MG, QD
  10. JEVITY [Concomitant]
     Active Substance: DIETARY SUPPLEMENT
     Indication: GASTROINTESTINAL TUBE INSERTION
     Dosage: 1.5-32 OZ A DAY WITH 180ML OF WATER
     Route: 050

REACTIONS (8)
  - Urinary tract infection [Unknown]
  - Dysstasia [Unknown]
  - Cystitis [Unknown]
  - Dysphagia [Recovered/Resolved]
  - Gait disturbance [Unknown]
  - Aphasia [Unknown]
  - Dysphonia [Unknown]
  - Off label use [Unknown]

NARRATIVE: CASE EVENT DATE: 201406
